FAERS Safety Report 4380649-5 (Version None)
Quarter: 2004Q2

REPORT INFORMATION
  Report Type: 
  Country: None (occurrence: None)
  Receive Date: 20040616
  Receipt Date: 20040601
  Transmission Date: 20050107
  Serious: Yes (Death)
  Sender: FDA-Public Use
  Company Number: AU_040507707

PATIENT
  Age: 68 Year
  Sex: Female

DRUGS (10)
  1. EVISTA [Suspect]
     Indication: OSTEOPOROSIS
     Dosage: 60 MG DAY
     Dates: start: 20011218, end: 20020321
  2. PLACEBO [Concomitant]
  3. AMILORIDE HYDROCHLORIDE [Concomitant]
  4. CALCIUM CARBONATE [Concomitant]
  5. CINNARIZINE [Concomitant]
  6. ENALAPRIL MALEATE [Concomitant]
  7. HERBS [Concomitant]
  8. METOPROLOL TARTRATE [Concomitant]
  9. PIRACETAM [Concomitant]
  10. RANITIDINE HYDROCHLORIDE [Concomitant]

REACTIONS (1)
  - SUDDEN DEATH [None]
